FAERS Safety Report 9703393 (Version 1)
Quarter: 2013Q4

REPORT INFORMATION
  Report Type: Spontaneous
  Country: US (occurrence: US)
  Receive Date: 20131122
  Receipt Date: 20131122
  Transmission Date: 20140711
  Serious: Yes (Other)
  Sender: FDA-Public Use
  Company Number: PHEH2013US024225

PATIENT
  Sex: Female

DRUGS (1)
  1. TYZEKA [Suspect]
     Dosage: UNK

REACTIONS (2)
  - Hepatitis C [Unknown]
  - Maternal exposure during pregnancy [Unknown]
